FAERS Safety Report 11468993 (Version 2)
Quarter: 2015Q3

REPORT INFORMATION
  Report Type: Report from Study
  Country: US (occurrence: US)
  Receive Date: 20150908
  Receipt Date: 20150929
  Transmission Date: 20151125
  Serious: Yes (Other)
  Sender: FDA-Public Use
  Company Number: US-TEVA-591046USA

PATIENT
  Age: 72 Year
  Sex: Female
  Weight: 63 kg

DRUGS (6)
  1. LEUCOVORIN CALCIUM. [Suspect]
     Active Substance: LEUCOVORIN CALCIUM
     Indication: COLON CANCER
     Dosage: OVER 2 HOURS ON DAY 1
     Route: 042
     Dates: start: 20150414
  2. CELECOXIB;PLACEBO [Suspect]
     Active Substance: CELECOXIB\PLACEBO
     Route: 048
     Dates: start: 20150414
  3. ELOXATIN [Suspect]
     Active Substance: OXALIPLATIN
     Indication: COLON CANCER
     Dosage: OVER 2 HOURS ON DAY 1
     Route: 042
     Dates: start: 20150414
  4. FLUOROURACIL. [Suspect]
     Active Substance: FLUOROURACIL
     Dosage: OVER 46-48 HOURS ON DAY 1
     Route: 042
     Dates: start: 20150414
  5. CELECOXIB;PLACEBO [Suspect]
     Active Substance: CELECOXIB\PLACEBO
     Indication: COLON CANCER
     Dosage: 400 MILLIGRAM DAILY; DAY 1 OF CYCLE 2
     Route: 048
     Dates: start: 20150428
  6. FLUOROURACIL. [Suspect]
     Active Substance: FLUOROURACIL
     Indication: COLON CANCER
     Dosage: ON DAY 1
     Route: 042
     Dates: start: 20150414

REACTIONS (1)
  - Neutrophil count decreased [Recovering/Resolving]

NARRATIVE: CASE EVENT DATE: 20150512
